FAERS Safety Report 18415365 (Version 1)
Quarter: 2020Q4

REPORT INFORMATION
  Report Type: Spontaneous
  Country: US (occurrence: US)
  Receive Date: 20201022
  Receipt Date: 20201022
  Transmission Date: 20210114
  Serious: Yes (Hospitalization)
  Sender: FDA-Public Use
  Company Number: None

PATIENT
  Age: 80 Year
  Sex: Female

DRUGS (14)
  1. FERROUS SULF, [Concomitant]
  2. PANTOPRAZOLE, [Concomitant]
  3. VITAMIN D [Concomitant]
     Active Substance: VITAMIN D NOS
  4. ESBRIET [Suspect]
     Active Substance: PIRFENIDONE
     Indication: IDIOPATHIC PULMONARY FIBROSIS
     Dosage: ?          OTHER DOSE:1 TAB;?
     Route: 048
     Dates: start: 20200221
  5. ROPINIROLE, [Concomitant]
  6. UNISOM SLEEP, [Concomitant]
  7. MULTAQ [Concomitant]
     Active Substance: DRONEDARONE
  8. EVISTA, [Concomitant]
  9. HYDROCHOROT [Concomitant]
  10. ASPIRIN LOW, [Concomitant]
  11. GABAPENTIN, [Concomitant]
  12. OMEGA-3, [Concomitant]
  13. SIMVASTATIN, [Concomitant]
  14. AMLODIPINE, [Concomitant]

REACTIONS (1)
  - Hospitalisation [None]

NARRATIVE: CASE EVENT DATE: 20201016
